FAERS Safety Report 10543697 (Version 2)
Quarter: 2014Q4

REPORT INFORMATION
  Report Type: Report from Study
  Country: JP (occurrence: JP)
  Receive Date: 20141027
  Receipt Date: 20141211
  Transmission Date: 20150529
  Serious: Yes (Hospitalization, Other)
  Sender: FDA-Public Use
  Company Number: PHHY2014JP138497

PATIENT
  Age: 12 Year
  Sex: Female

DRUGS (13)
  1. KLARICID [Concomitant]
     Active Substance: CLARITHROMYCIN
     Indication: CYSTIC FIBROSIS
     Dosage: 300 MG, UNK
     Route: 048
  2. TOBI [Suspect]
     Active Substance: TOBRAMYCIN
     Indication: CYSTIC FIBROSIS
     Dosage: 600 MG, UNK
     Route: 055
     Dates: start: 20131104, end: 20131201
  3. BISOLVON [Concomitant]
     Active Substance: BROMHEXINE HYDROCHLORIDE
     Indication: CYSTIC FIBROSIS
     Dosage: 3 ML, UNK
     Route: 055
  4. TOBI [Suspect]
     Active Substance: TOBRAMYCIN
     Dosage: 600 MG, UNK
     Route: 055
     Dates: start: 20140513, end: 20140527
  5. MUCODYNE [Concomitant]
     Active Substance: CARBOCYSTEINE
     Indication: CYSTIC FIBROSIS
     Dosage: 1000 MG, UNK
     Route: 048
  6. INTAL [Concomitant]
     Active Substance: CROMOLYN SODIUM
     Indication: CYSTIC FIBROSIS
     Dosage: 6 ML, UNK
     Route: 055
  7. LIPACREON [Concomitant]
     Active Substance: PANCRELIPASE
     Indication: CYSTIC FIBROSIS
     Dosage: 600 MG, UNK
     Route: 048
  8. TOBI [Suspect]
     Active Substance: TOBRAMYCIN
     Dosage: 600 MG, UNK
     Route: 055
     Dates: start: 20131231, end: 20140127
  9. TOBI [Suspect]
     Active Substance: TOBRAMYCIN
     Dosage: 600 MG, UNK
     Route: 055
     Dates: start: 20140225, end: 20140324
  10. PULMOZYME [Concomitant]
     Active Substance: DORNASE ALFA
     Indication: CYSTIC FIBROSIS
     Dosage: 5 ML, UNK
     Route: 055
  11. SINGULAIR [Concomitant]
     Active Substance: MONTELUKAST SODIUM
     Indication: CYSTIC FIBROSIS
     Dosage: 5 MG, UNK
     Route: 048
  12. ASTOMIN [Concomitant]
     Active Substance: DIMEMORFAN
     Indication: CYSTIC FIBROSIS
     Dosage: 20 MG, UNK
     Route: 048
     Dates: end: 20140619
  13. TOBI [Suspect]
     Active Substance: TOBRAMYCIN
     Dosage: 600 MG, UNK
     Route: 055
     Dates: start: 20140701

REACTIONS (3)
  - Haematemesis [Recovered/Resolved]
  - Anaemia [Recovered/Resolved]
  - Melaena [Unknown]

NARRATIVE: CASE EVENT DATE: 20140430
